FAERS Safety Report 10751065 (Version 3)
Quarter: 2015Q2

REPORT INFORMATION
  Report Type: Report from Study
  Country: JP (occurrence: None)
  Receive Date: 20150128
  Receipt Date: 20150623
  Transmission Date: 20150821
  Serious: Yes (Death, Life-Threatening, Other)
  Sender: FDA-Public Use
  Company Number: 2015-10431

PATIENT
  Age: 88 Year
  Sex: Male

DRUGS (7)
  1. GATIFLO (GATIFLOXACIN) [Concomitant]
  2. DILATE PLUS (PHENYLEPHRINE HYDROCHLORIDE, TROPICAMIDE) [Concomitant]
  3. POVIDONE-IODINE (POVIDONE-IODINE) [Concomitant]
  4. TROPICAMIDE (TROPICAMIDE) [Concomitant]
     Active Substance: TROPICAMIDE
  5. EYLEA [Suspect]
     Active Substance: AFLIBERCEPT
     Indication: AGE-RELATED MACULAR DEGENERATION
     Dosage: 2 MG, ONCE (TOTAL OF 7 DOSES), INTRAOCULAR?
     Route: 031
     Dates: start: 20130306, end: 20141127
  6. DILATE PLUS (PHENYLEPHRINE HYDROCHLORIDE, TROPICAMIDE) [Concomitant]
  7. XYLOCAINE [Concomitant]
     Active Substance: LIDOCAINE HYDROCHLORIDE

REACTIONS (2)
  - Cardio-respiratory arrest [None]
  - Cardiac death [None]

NARRATIVE: CASE EVENT DATE: 20141206
